FAERS Safety Report 6358199-6 (Version None)
Quarter: 2009Q3

REPORT INFORMATION
  Report Type: 
  Country: None (occurrence: None)
  Receive Date: 20090911
  Receipt Date: 20090831
  Transmission Date: 20100115
  Serious: Yes (Hospitalization, Other)
  Sender: FDA-Public Use
  Company Number: 2009AP003318

PATIENT
  Age: 14 Year
  Sex: Female

DRUGS (6)
  1. MYCOPHENOLATE MOFETIL [Suspect]
     Indication: RENAL TRANSPLANT
  2. TACROLIMUS [Suspect]
     Indication: RENAL TRANSPLANT
  3. PREDNISOLONE [Concomitant]
  4. MERCAPTAMINE (MERCAPTAMINE) [Concomitant]
  5. SIROLIMUS (SIROLIMUS) [Concomitant]
  6. ENALAPRIL MALEATE [Concomitant]

REACTIONS (7)
  - COMPLICATIONS OF TRANSPLANTED KIDNEY [None]
  - DRUG LEVEL INCREASED [None]
  - DRUG TOXICITY [None]
  - INTRA-ABDOMINAL HAEMORRHAGE [None]
  - RENAL TUBULAR NECROSIS [None]
  - REVERSIBLE POSTERIOR LEUKOENCEPHALOPATHY SYNDROME [None]
  - THROMBECTOMY [None]
